FAERS Safety Report 7922029-9 (Version None)
Quarter: 2011Q4

REPORT INFORMATION
  Report Type: 
  Country: None (occurrence: None)
  Receive Date: 20111117
  Receipt Date: 20111109
  Transmission Date: 20120403
  Serious: Yes (Hospitalization)
  Sender: FDA-Public Use
  Company Number: DE-BAXTER-2011BH035223

PATIENT
  Age: 69 Year
  Sex: Female

DRUGS (2)
  1. GAMMAGARD LIQUID [Suspect]
     Indication: PRODUCT USED FOR UNKNOWN INDICATION
     Route: 065
     Dates: start: 20111026
  2. GAMMAGARD LIQUID [Suspect]
     Route: 065

REACTIONS (13)
  - ANGINA PECTORIS [None]
  - NODULE [None]
  - MALAISE [None]
  - ARTHRALGIA [None]
  - INFLAMMATION [None]
  - INJECTION SITE URTICARIA [None]
  - INFUSION SITE PAIN [None]
  - INFUSION SITE INFLAMMATION [None]
  - NAIL BED INFLAMMATION [None]
  - MYOCARDIAL INFARCTION [None]
  - MUSCULOSKELETAL PAIN [None]
  - MYALGIA [None]
  - PAIN IN EXTREMITY [None]
